FAERS Safety Report 20734741 (Version 6)
Quarter: 2023Q1

REPORT INFORMATION
  Report Type: Spontaneous
  Country: DE (occurrence: DE)
  Receive Date: 20220421
  Receipt Date: 20230218
  Transmission Date: 20230418
  Serious: Yes (Hospitalization, Disabling)
  Sender: FDA-Public Use
  Company Number: DE-NOVARTISPH-NVSC2022DE090198

PATIENT
  Age: 65 Year
  Sex: Female

DRUGS (19)
  1. CARBOPLATIN [Suspect]
     Active Substance: CARBOPLATIN
     Indication: Non-small cell lung cancer
     Dosage: 578 MG, QW
     Route: 042
     Dates: start: 20211118, end: 20211214
  2. NIVOLUMAB [Suspect]
     Active Substance: NIVOLUMAB
     Indication: Non-small cell lung cancer
     Dosage: 360MG 6 WEEK
     Route: 042
     Dates: start: 20211118, end: 20220106
  3. IPILIMUMAB [Suspect]
     Active Substance: IPILIMUMAB
     Indication: Non-small cell lung cancer
     Dosage: 70MG 6 WEEK
     Route: 042
     Dates: start: 20211118, end: 20220106
  4. TETRACAINE [Concomitant]
     Active Substance: TETRACAINE
     Indication: Product used for unknown indication
     Dosage: UNK
     Route: 065
     Dates: start: 20211214
  5. PANTOPRAZOLE [Concomitant]
     Active Substance: PANTOPRAZOLE
     Indication: Prophylaxis
     Dosage: 40 MG
     Route: 065
     Dates: start: 20220127, end: 20220331
  6. DEXAMETHASONE [Concomitant]
     Active Substance: DEXAMETHASONE
     Indication: Product used for unknown indication
     Dosage: 20MG
     Route: 065
     Dates: start: 20220114, end: 20220208
  7. DEXAMETHASONE [Concomitant]
     Active Substance: DEXAMETHASONE
     Dosage: 4 MG MOUTH SPRAY 250ML PUMPSPRAY
     Route: 065
     Dates: start: 20220114, end: 20220208
  8. OMEPRAZOLE [Concomitant]
     Active Substance: OMEPRAZOLE
     Indication: Prophylaxis
     Dosage: 20 MG
     Route: 065
     Dates: start: 20220401
  9. GRANI DENK [Concomitant]
     Indication: Prophylaxis
     Dosage: 10MG (K 1MG/ML CONCENTRATE FOR SOLUTION FOR INJECTION OR INFUSION 5X1 MLN2 PZN:10943671)
     Route: 065
     Dates: start: 20211118, end: 20211214
  10. ONDANSETRON [Concomitant]
     Active Substance: ONDANSETRON
     Indication: Prophylaxis
     Dosage: 8MG
     Route: 065
     Dates: start: 20211116, end: 20220106
  11. FOSAPREPITANT [Concomitant]
     Active Substance: FOSAPREPITANT
     Indication: Product used for unknown indication
     Dosage: UNK
     Route: 065
  12. SALIVA NATURA [Concomitant]
     Indication: Prophylaxis
     Dosage: UNK (MOUTH SPRAY 250ML PUMPSPRAY)
     Route: 065
     Dates: start: 20211215, end: 20220222
  13. PREDNISOLONE [Concomitant]
     Active Substance: PREDNISOLONE
     Indication: Product used for unknown indication
     Dosage: 20MG (MOUTH SPRAY 250ML PUMPSPRAY)
     Route: 065
     Dates: start: 20220411, end: 20220509
  14. PREDNISOLONE [Concomitant]
     Active Substance: PREDNISOLONE
     Dosage: 10MG (MOUTH SPRAY 250ML PUMPSPRAY)
     Route: 065
     Dates: start: 20220509
  15. MCP [Concomitant]
     Active Substance: METOCLOPRAMIDE HYDROCHLORIDE
     Indication: Prophylaxis
     Dosage: 10MG
     Route: 065
     Dates: start: 20211116, end: 20220115
  16. GLANDOMED [Concomitant]
     Indication: Product used for unknown indication
     Dosage: UNK
     Route: 065
  17. PAMIDRONATE DISODIUM [Concomitant]
     Active Substance: PAMIDRONATE DISODIUM
     Indication: Product used for unknown indication
     Dosage: UNK (3MG/ML 60MG CONCENTRATE FOR SOLUTION FOR INFUSION 1 ST N1)
     Route: 065
     Dates: start: 20211125, end: 20211214
  18. LEVOTHYROXINE [Concomitant]
     Active Substance: LEVOTHYROXINE
     Indication: Product used for unknown indication
     Dosage: UNK
     Route: 065
  19. AMPHO-MORONAL [Concomitant]
     Active Substance: AMPHOTERICIN B
     Indication: Product used for unknown indication
     Dosage: UNK
     Route: 065

REACTIONS (2)
  - Dysphagia [Unknown]
  - Off label use [Unknown]

NARRATIVE: CASE EVENT DATE: 20220401
